FAERS Safety Report 9306538 (Version 2)
Quarter: 2014Q1

REPORT INFORMATION
  Report Type: Spontaneous
  Country: US (occurrence: US)
  Receive Date: 20130523
  Receipt Date: 20140128
  Transmission Date: 20141002
  Serious: Yes (Life-Threatening, Hospitalization, Other)
  Sender: FDA-Public Use
  Company Number: US-BAYER-2013-064216

PATIENT
  Age: 31 Year
  Sex: Female

DRUGS (3)
  1. YASMIN [Suspect]
  2. SINGULAIR [Concomitant]
  3. FLOVENT [Concomitant]

REACTIONS (13)
  - Gallbladder injury [None]
  - Deep vein thrombosis [None]
  - Pulmonary embolism [None]
  - Cerebrovascular accident [None]
  - Injury [None]
  - Fear of disease [None]
  - Anxiety [None]
  - Anhedonia [None]
  - Pain [None]
  - Emotional distress [None]
  - Pain [None]
  - Quality of life decreased [None]
  - Cholecystitis [None]
